FAERS Safety Report 11117277 (Version 1)
Quarter: 2015Q2

REPORT INFORMATION
  Report Type: Report from Study
  Country: IT (occurrence: IT)
  Receive Date: 20150515
  Receipt Date: 20150515
  Transmission Date: 20150821
  Serious: Yes (Other)
  Sender: FDA-Public Use
  Company Number: PHHY2014IT046909

PATIENT
  Age: 51 Year
  Sex: Female

DRUGS (1)
  1. CERTICAN [Suspect]
     Active Substance: EVEROLIMUS
     Indication: HEART TRANSPLANT
     Dosage: 2.25 MG, UNK
     Route: 048

REACTIONS (2)
  - Atrial fibrillation [Unknown]
  - Renal failure [Unknown]

NARRATIVE: CASE EVENT DATE: 20121114
